FAERS Safety Report 7076275 (Version 2)
Quarter: 2014Q3

REPORT INFORMATION
  Report Type: Spontaneous
  Country: US (occurrence: None)
  Receive Date: 20090803
  Receipt Date: 20140919
  Transmission Date: 20150326
  Serious: Yes (Hospitalization, Other)
  Sender: FDA-Public Use
  Company Number: 2009S1005940

PATIENT
  Age: 50 Year
  Sex: Female

DRUGS (16)
  1. SEROQUEL [Concomitant]
     Active Substance: QUETIAPINE FUMARATE
  2. LISINOPRIL. [Concomitant]
     Active Substance: LISINOPRIL
  3. GLUCOSAMINE [Concomitant]
     Active Substance: GLUCOSAMINE
  4. DOCUSATE [Suspect]
     Active Substance: DOCUSATE
     Route: 048
     Dates: start: 20081115, end: 20081115
  5. EFFEXOR (VENLAFAXINE HYDROCHLORIDE) [Concomitant]
  6. DIAZEPAM. [Concomitant]
     Active Substance: DIAZEPAM
  7. TOPROL (METOPROLOL SUCCINATE) [Concomitant]
  8. DULCOLAX (BISACODYL) [Concomitant]
     Active Substance: BISACODYL
  9. CLONAZEPAM. [Concomitant]
     Active Substance: CLONAZEPAM
  10. EXCEDRIN [Concomitant]
     Active Substance: ACETAMINOPHEN\ASPIRIN\CAFFEINE
  11. HYDROCHLOROTHIAZIDE. [Concomitant]
     Active Substance: HYDROCHLOROTHIAZIDE
  12. OLMESARTAN [Concomitant]
     Active Substance: OLMESARTAN
  13. AMITRIPTYLINE [Concomitant]
     Active Substance: AMITRIPTYLINE
  14. CITALOPRAM [Concomitant]
     Active Substance: CITALOPRAM HYDROBROMIDE
  15. BUPROPION [Concomitant]
     Active Substance: BUPROPION
  16. PHOSPHO-SODA [Suspect]
     Active Substance: SODIUM PHOSPHATE, DIBASIC\SODIUM PHOSPHATE, MONOBASIC
     Indication: COLONOSCOPY
     Dosage: PO
     Route: 048
     Dates: start: 20081115, end: 20081116

REACTIONS (11)
  - Renal osteodystrophy [None]
  - Nephrogenic anaemia [None]
  - Dysphagia [None]
  - Renal failure acute [None]
  - Acute phosphate nephropathy [None]
  - Asthenia [None]
  - Dehydration [None]
  - Nausea [None]
  - Renal failure chronic [None]
  - Nephrocalcinosis [None]
  - Fatigue [None]

NARRATIVE: CASE EVENT DATE: 20081126
